FAERS Safety Report 8998934 (Version 1)
Quarter: 2013Q1

REPORT INFORMATION
  Report Type: Spontaneous
  Country: US (occurrence: US)
  Receive Date: 20130103
  Receipt Date: 20130103
  Transmission Date: 20140127
  Serious: No
  Sender: FDA-Public Use
  Company Number: US-PFIZER INC-2012330503

PATIENT
  Sex: Female
  Weight: 63.49 kg

DRUGS (2)
  1. ESTRING [Suspect]
     Indication: VAGINAL DISORDER
     Dosage: UNK, EVERY 3 MONTHS
     Dates: end: 2011
  2. ESTRING [Suspect]
     Dosage: UNK, EVERY 3 MONTHS
     Dates: start: 2012

REACTIONS (1)
  - Drug effect decreased [Recovered/Resolved]
